FAERS Safety Report 21633022 (Version 1)
Quarter: 2022Q4

REPORT INFORMATION
  Report Type: Spontaneous
  Country: US (occurrence: None)
  Receive Date: 20221122
  Receipt Date: 20221122
  Transmission Date: 20230113
  Serious: Yes (unspecified)
  Sender: FDA-Public Use
  Company Number: None

PATIENT
  Age: 31 Year
  Sex: Male
  Weight: 70.2 kg

DRUGS (2)
  1. .DELTA.8-TETRAHYDROCANNABINOL [Suspect]
     Active Substance: .DELTA.8-TETRAHYDROCANNABINOL
  2. VITAMIN D [Concomitant]
     Active Substance: VITAMIN D NOS

REACTIONS (7)
  - Psychotic disorder [None]
  - Paranoia [None]
  - Incoherent [None]
  - Dependence [None]
  - Memory impairment [None]
  - Intellectual disability [None]
  - Judgement impaired [None]

NARRATIVE: CASE EVENT DATE: 20221105
